FAERS Safety Report 22006231 (Version 1)
Quarter: 2023Q1

REPORT INFORMATION
  Report Type: Spontaneous
  Country: US (occurrence: None)
  Receive Date: 20230216
  Receipt Date: 20230216
  Transmission Date: 20230418
  Serious: Yes (Hospitalization)
  Sender: FDA-Public Use
  Company Number: None

PATIENT
  Sex: Female

DRUGS (13)
  1. STELARA [Suspect]
     Active Substance: USTEKINUMAB
     Indication: Crohn^s disease
     Route: 058
     Dates: start: 20220707
  2. BUDESONIDE CAP [Concomitant]
  3. BUT/APAP/CAF CODEINE [Concomitant]
  4. CHOLESTYRAM POW [Concomitant]
  5. GABAPENTIN [Concomitant]
     Active Substance: GABAPENTIN
  6. HUMIRA PEN KIT CD/UC/HS [Concomitant]
  7. OXYCODONE TAB [Concomitant]
  8. PANTOPRAZOLE TAB [Concomitant]
  9. PREDNISONE [Concomitant]
     Active Substance: PREDNISONE
  10. PREVNAR [Concomitant]
     Active Substance: PNEUMOCOCCAL 7-VALENT CONJUGATE VACCINE (DIPHTHERIA CRM197 PROTEIN)
  11. ROMETHAZINE [Concomitant]
  12. STOOL SOFTNR CAP [Concomitant]
  13. VENLAFAXINE CAP [Concomitant]

REACTIONS (4)
  - Crohn^s disease [None]
  - Condition aggravated [None]
  - Asthma [None]
  - Impaired quality of life [None]
